FAERS Safety Report 9164519 (Version 2)
Quarter: 2013Q2

REPORT INFORMATION
  Report Type: Spontaneous
  Country: US (occurrence: US)
  Receive Date: 20130315
  Receipt Date: 20130403
  Transmission Date: 20140414
  Serious: No
  Sender: FDA-Public Use
  Company Number: PHEH2013US005942

PATIENT
  Age: 83 Year
  Sex: Male
  Weight: 81.63 kg

DRUGS (9)
  1. TASIGNA [Suspect]
     Indication: CHRONIC MYELOID LEUKAEMIA
     Dosage: 2 DF, BID
     Route: 048
     Dates: start: 201302
  2. AGGRENOX [Concomitant]
  3. PRAVASTATIN [Concomitant]
  4. HYDROCHLOROTHIAZID [Concomitant]
  5. LISINOPRIL [Concomitant]
  6. PLAVIX [Concomitant]
  7. RANITIDINE [Concomitant]
  8. SERTRALINE [Concomitant]
  9. METFORMIN ER [Concomitant]

REACTIONS (4)
  - Anaemia [Recovering/Resolving]
  - Fatigue [Unknown]
  - Leukocytosis [Unknown]
  - Thrombocytosis [Unknown]
